FAERS Safety Report 22165793 (Version 5)
Quarter: 2025Q3

REPORT INFORMATION
  Report Type: Report from Study
  Country: JP (occurrence: JP)
  Receive Date: 20230403
  Receipt Date: 20250902
  Transmission Date: 20251021
  Serious: Yes (Death, Life-Threatening, Other)
  Sender: NOVARTIS
  Company Number: JP-002147023-NVSJ2021JP012732

PATIENT
  Age: 60 Year
  Sex: Male

DRUGS (10)
  1. KYMRIAH [Suspect]
     Active Substance: TISAGENLECLEUCEL
     Indication: Double hit lymphoma
     Route: 041
     Dates: start: 20210319, end: 20210319
  2. RITUXAN [Concomitant]
     Active Substance: RITUXIMAB
     Indication: Double hit lymphoma
     Route: 065
     Dates: start: 202102
  3. CARBOPLATIN [Concomitant]
     Active Substance: CARBOPLATIN
     Indication: Double hit lymphoma
     Route: 065
     Dates: start: 202102
  4. CARBOPLATIN [Concomitant]
     Active Substance: CARBOPLATIN
     Route: 065
     Dates: start: 20210511, end: 20210706
  5. GEMCITABINE [Concomitant]
     Active Substance: GEMCITABINE
     Indication: Double hit lymphoma
     Route: 065
     Dates: start: 202102
  6. GEMCITABINE [Concomitant]
     Active Substance: GEMCITABINE
     Route: 065
     Dates: start: 20210511, end: 20210706
  7. DEXAMETHASONE [Concomitant]
     Active Substance: DEXAMETHASONE
     Indication: Double hit lymphoma
     Route: 065
     Dates: start: 202102
  8. CYCLOPHOSPHAMIDE [Concomitant]
     Active Substance: CYCLOPHOSPHAMIDE
     Indication: Lymphodepletion
     Route: 065
     Dates: start: 20210315
  9. FLUDARABINE [Concomitant]
     Active Substance: FLUDARABINE PHOSPHATE
     Indication: Lymphodepletion
     Route: 065
     Dates: start: 20210315
  10. PIPERACILLIN SODIUM\TAZOBACTAM SODIUM [Concomitant]
     Active Substance: PIPERACILLIN SODIUM\TAZOBACTAM SODIUM
     Indication: Product used for unknown indication
     Route: 065

REACTIONS (12)
  - Double hit lymphoma [Fatal]
  - Malignant neoplasm progression [Fatal]
  - Cytokine release syndrome [Recovered/Resolved]
  - Pyrexia [Recovered/Resolved]
  - Hypoxia [Unknown]
  - Neurotoxicity [Recovered/Resolved]
  - Immune effector cell-associated neurotoxicity syndrome [Recovered/Resolved]
  - Cognitive disorder [Recovered/Resolved]
  - Depressed level of consciousness [Unknown]
  - Aphasia [Unknown]
  - White blood cell count decreased [Recovered/Resolved]
  - Hypogammaglobulinaemia [Unknown]

NARRATIVE: CASE EVENT DATE: 20210321
